FAERS Safety Report 7987610-X (Version None)
Quarter: 2011Q4

REPORT INFORMATION
  Report Type: 
  Country: None (occurrence: None)
  Receive Date: 20111216
  Receipt Date: 20110825
  Transmission Date: 20120403
  Serious: Yes (Hospitalization)
  Sender: FDA-Public Use
  Company Number: US-BRISTOL-MYERS SQUIBB COMPANY-13384623

PATIENT
  Age: 40 Year
  Sex: Male
  Weight: 106 kg

DRUGS (14)
  1. METOPROLOL TARTRATE [Concomitant]
  2. PRAVASTATIN [Concomitant]
  3. ABILIFY [Suspect]
     Indication: PERSONALITY DISORDER
     Dosage: 30MG ONCE DAILY IN MNG
     Route: 048
     Dates: start: 20030901
  4. VITAMIN TAB [Concomitant]
  5. ABILIFY [Suspect]
     Indication: SELF ESTEEM DECREASED
     Dosage: 30MG ONCE DAILY IN MNG
     Route: 048
     Dates: start: 20030901
  6. ZOCOR [Concomitant]
  7. ABILIFY [Suspect]
     Indication: THINKING ABNORMAL
     Dosage: 30MG ONCE DAILY IN MNG
     Route: 048
     Dates: start: 20030901
  8. ABILIFY [Suspect]
     Indication: NERVOUSNESS
     Dosage: 30MG ONCE DAILY IN MNG
     Route: 048
     Dates: start: 20030901
  9. TRAZODONE HCL [Concomitant]
     Dosage: IN EVENING
  10. LISINOPRIL [Concomitant]
     Dosage: IN MORNING
  11. ABILIFY [Suspect]
     Indication: PSYCHOTIC DISORDER
     Dosage: 30MG ONCE DAILY IN MNG
     Route: 048
     Dates: start: 20030901
  12. METFORMIN HCL [Concomitant]
  13. ASPIRIN [Concomitant]
     Dosage: IN MORNING
  14. GEMFIBROZIL [Concomitant]

REACTIONS (3)
  - WEIGHT DECREASED [None]
  - DIABETES MELLITUS INADEQUATE CONTROL [None]
  - INSOMNIA [None]
